FAERS Safety Report 9893072 (Version 1)
Quarter: 2014Q1

REPORT INFORMATION
  Report Type: Report from Study
  Country: US (occurrence: US)
  Receive Date: 20140213
  Receipt Date: 20140213
  Transmission Date: 20141002
  Serious: Yes (Life-Threatening)
  Sender: FDA-Public Use
  Company Number: US-ROCHE-1326758

PATIENT
  Sex: Male
  Weight: 135 kg

DRUGS (13)
  1. AVASTIN [Suspect]
     Indication: RECTAL CANCER
     Route: 042
  2. AVASTIN [Suspect]
     Route: 042
     Dates: start: 20110518
  3. AVASTIN [Suspect]
     Route: 042
     Dates: start: 20110601
  4. OXALIPLATIN [Suspect]
     Indication: RECTAL CANCER
     Route: 042
  5. NORCO [Concomitant]
     Indication: PAIN
     Dosage: 10/325
     Route: 065
  6. FLUOROURACIL [Concomitant]
     Route: 042
  7. LEUCOVORIN [Concomitant]
     Route: 042
  8. GRANISETRON [Concomitant]
     Route: 042
  9. LORAZEPAM [Concomitant]
     Route: 042
  10. DEXAMETHASONE [Concomitant]
     Route: 042
  11. DEXAMETHASONE [Concomitant]
     Route: 042
     Dates: start: 20110504
  12. FOSAPREPITANT [Concomitant]
     Route: 042
  13. ONDANSETRON [Concomitant]
     Route: 042

REACTIONS (4)
  - Drug hypersensitivity [Recovered/Resolved]
  - Hypotension [Recovered/Resolved]
  - Cyanosis [Recovered/Resolved]
  - Laryngeal oedema [Recovered/Resolved]
